FAERS Safety Report 7764090-0 (Version None)
Quarter: 2011Q3

REPORT INFORMATION
  Report Type: 
  Country: None (occurrence: None)
  Receive Date: 20110921
  Receipt Date: 20110914
  Transmission Date: 20111222
  Serious: Yes (Other)
  Sender: FDA-Public Use
  Company Number: US-NAPPMUNDI-USA-2011-0074667

PATIENT
  Sex: Female

DRUGS (2)
  1. BUTRANS [Suspect]
     Indication: BACK PAIN
     Dosage: 20 MCG/HR, DAILY
  2. SUBUTEX [Suspect]
     Indication: BREAKTHROUGH PAIN

REACTIONS (2)
  - SURGERY [None]
  - BREAKTHROUGH PAIN [None]
